FAERS Safety Report 25986626 (Version 1)
Quarter: 2025Q4

REPORT INFORMATION
  Report Type: Spontaneous
  Country: CN (occurrence: CN)
  Receive Date: 20251031
  Receipt Date: 20251031
  Transmission Date: 20260117
  Serious: Yes (Other)
  Sender: MERCK SHARP & DOHME LLC
  Company Number: CN-009507513-2343322

PATIENT
  Age: 63 Year
  Sex: Female

DRUGS (3)
  1. PEMBROLIZUMAB [Interacting]
     Active Substance: PEMBROLIZUMAB
     Indication: Gallbladder adenocarcinoma
     Dosage: 200 MG (ADMINISTERED ON DAY 1), WITH A 21-DAY CYCLE, ADMINISTERED VIA DEEP VEIN CATHETERIZATION
     Route: 042
  2. GEMCITABINE [Suspect]
     Active Substance: GEMCITABINE
     Indication: Gallbladder adenocarcinoma
     Dosage: TIME INTERVAL: CYCLICAL: 1,000 MG/M2 (ADMINISTERED ON DAYS 1 AND 8), WITH A 21-DAY CYCLE, ADMINIS...
     Route: 042
  3. PACLITAXEL [Interacting]
     Active Substance: PACLITAXEL
     Indication: Gallbladder adenocarcinoma
     Dosage: TIME INTERVAL: CYCLICAL: 125 MG/M2 (ADMINISTERED ON DAYS 1 AND 8), WITH A 21-DAY CYCLE, ADMINISTE...
     Route: 042

REACTIONS (6)
  - Ketoacidosis [Unknown]
  - Potentiating drug interaction [Unknown]
  - Coma [Unknown]
  - Immune-mediated thyroiditis [Unknown]
  - Immune-mediated pancreatitis [Unknown]
  - Off label use [Unknown]
